FAERS Safety Report 6326492-9 (Version None)
Quarter: 2009Q3

REPORT INFORMATION
  Report Type: 
  Country: None (occurrence: None)
  Receive Date: 20090821
  Receipt Date: 20090810
  Transmission Date: 20100115
  Serious: Yes (Hospitalization, Disabling, Other)
  Sender: FDA-Public Use
  Company Number: ADR12802009

PATIENT
  Age: 88 Year
  Sex: Female

DRUGS (8)
  1. RANITIDINE [Suspect]
     Dosage: 150 MG ORAL
     Route: 048
     Dates: start: 20070327, end: 20070410
  2. GABAPENTIN [Concomitant]
  3. BENDROFLUMETHIAZIDE (2.5 MG) [Concomitant]
  4. DICLOFENAC (75 MG) [Concomitant]
  5. DOMPERIDONE (10 MG) [Concomitant]
  6. LEVOTHYROXINE SODIUM [Concomitant]
  7. MOVICOL (1 DF) [Concomitant]
  8. OXYCONTIN (25 MG) [Concomitant]

REACTIONS (3)
  - CEREBELLAR ATAXIA [None]
  - MANIA [None]
  - PARANOIA [None]
